FAERS Safety Report 9665014 (Version 5)
Quarter: 2014Q2

REPORT INFORMATION
  Report Type: Report from Study
  Country: US (occurrence: US)
  Receive Date: 20131101
  Receipt Date: 20140521
  Transmission Date: 20141212
  Serious: Yes (Hospitalization)
  Sender: FDA-Public Use
  Company Number: US-ROCHE-1295091

PATIENT
  Age: 15 Year
  Sex: Female
  Weight: 75.5 kg

DRUGS (7)
  1. BEVACIZUMAB [Suspect]
     Indication: ANAPLASTIC ASTROCYTOMA
     Route: 042
     Dates: start: 20130716, end: 20140507
  2. TEMOZOLOMIDE [Suspect]
     Indication: PRODUCT USED FOR UNKNOWN INDICATION
     Route: 048
     Dates: start: 20131015, end: 20131019
  3. TEMOZOLOMIDE [Suspect]
     Route: 048
     Dates: start: 20140218, end: 20140222
  4. TEMOZOLOMIDE [Suspect]
     Route: 048
     Dates: start: 20140422, end: 20140426
  5. IRINOTECAN [Suspect]
     Indication: PRODUCT USED FOR UNKNOWN INDICATION
     Route: 042
     Dates: start: 20131015
  6. IRINOTECAN [Suspect]
     Route: 042
     Dates: start: 20140218, end: 20140304
  7. IRINOTECAN [Suspect]
     Route: 042
     Dates: start: 20140422, end: 20140507

REACTIONS (2)
  - Bowel movement irregularity [Recovered/Resolved]
  - Hemiparesis [Not Recovered/Not Resolved]
